FAERS Safety Report 8548586-X (Version None)
Quarter: 2012Q3

REPORT INFORMATION
  Report Type: 
  Country: None (occurrence: None)
  Receive Date: 20120720
  Receipt Date: 20120720
  Transmission Date: 20120928
  Serious: Yes (Hospitalization)
  Sender: FDA-Public Use
  Company Number: None

PATIENT
  Age: 6 Year
  Sex: Male
  Weight: 22 kg

DRUGS (1)
  1. DEPAKOTE [Suspect]
     Indication: MYOCLONIC EPILEPSY
     Dosage: 625 TID PO
     Route: 048

REACTIONS (9)
  - PYREXIA [None]
  - HYPOXIA [None]
  - THIRST [None]
  - ILEUS [None]
  - PANCREATITIS HAEMORRHAGIC [None]
  - PANCREATIC PSEUDOCYST [None]
  - PLEURAL EFFUSION [None]
  - PANCREATITIS ACUTE [None]
  - HAEMOGLOBIN DECREASED [None]
